FAERS Safety Report 16887633 (Version 1)
Quarter: 2019Q4

REPORT INFORMATION
  Report Type: Spontaneous
  Country: NL (occurrence: NL)
  Receive Date: 20191005
  Receipt Date: 20191005
  Transmission Date: 20200122
  Serious: Yes (Other)
  Sender: FDA-Public Use
  Company Number: NL-AUROBINDO-AUR-APL-2019-064268

PATIENT
  Age: 68 Year
  Sex: Female

DRUGS (1)
  1. ALENDRONIC ACID 70MG TABLETS [Suspect]
     Active Substance: ALENDRONIC ACID
     Indication: OSTEOPOROSIS
     Dosage: 70 MILLIGRAM, EVERY WEEK
     Route: 048
     Dates: start: 201504, end: 201904

REACTIONS (1)
  - Gastrooesophageal cancer [Unknown]

NARRATIVE: CASE EVENT DATE: 201906
